FAERS Safety Report 7300787-4 (Version None)
Quarter: 2010Q4

REPORT INFORMATION
  Report Type: 
  Country: None (occurrence: None)
  Receive Date: 20101229
  Receipt Date: 20100222
  Transmission Date: 20110411
  Serious: Yes (Hospitalization)
  Sender: FDA-Public Use
  Company Number: RENA-1000598

PATIENT
  Age: 50 Year
  Sex: Male

DRUGS (2)
  1. RENVELA [Suspect]
     Indication: HYPERPHOSPHATAEMIA
     Dosage: 4.0 G, TID, ORAL, 4.0 G, TID, ORAL
     Route: 048
     Dates: start: 20090624, end: 20091221
  2. RENVELA [Suspect]
     Indication: HYPERPHOSPHATAEMIA
     Dosage: 4.0 G, TID, ORAL, 4.0 G, TID, ORAL
     Route: 048
     Dates: start: 20100201

REACTIONS (2)
  - CONSTIPATION [None]
  - INTESTINAL OBSTRUCTION [None]
